FAERS Safety Report 10010626 (Version 1)
Quarter: 2014Q1

REPORT INFORMATION
  Report Type: Spontaneous
  Country: US (occurrence: None)
  Receive Date: 20140312
  Receipt Date: 20140312
  Transmission Date: 20141002
  Serious: Yes (Other)
  Sender: FDA-Public Use
  Company Number: None

PATIENT
  Age: 93 Year
  Sex: Female
  Weight: 58.2 kg

DRUGS (2)
  1. EXJADE, 500 MG, NOVARTIS [Suspect]
     Indication: HAEMOCHROMATOSIS
     Route: 048
     Dates: start: 20140217, end: 20140310
  2. EXJADE [Suspect]
     Indication: HAEMOCHROMATOSIS
     Route: 048
     Dates: start: 20140217, end: 20140310

REACTIONS (3)
  - Hallucination [None]
  - Confusional state [None]
  - Visual acuity reduced [None]
